FAERS Safety Report 4417227-5 (Version None)
Quarter: 2004Q3

REPORT INFORMATION
  Report Type: 
  Country: None (occurrence: None)
  Receive Date: 20040806
  Receipt Date: 20040729
  Transmission Date: 20050211
  Serious: Yes (Other)
  Sender: FDA-Public Use
  Company Number: US-ROCHE-376308

PATIENT
  Age: 18 Year
  Sex: Female

DRUGS (2)
  1. ACCUTANE [Suspect]
     Indication: ACNE
     Route: 048
     Dates: start: 19940615
  2. ORAL CONTRACEPTIVE PILL [Concomitant]
     Route: 048

REACTIONS (1)
  - HEPATITIS C [None]
